FAERS Safety Report 6112331-8 (Version None)
Quarter: 2009Q1

REPORT INFORMATION
  Report Type: 
  Country: None (occurrence: None)
  Receive Date: 20090311
  Receipt Date: 20090311
  Transmission Date: 20090719
  Serious: Yes (Other)
  Sender: FDA-Public Use
  Company Number: None

PATIENT
  Sex: Female
  Weight: 81.8743 kg

DRUGS (1)
  1. FUROSEMIDE [Suspect]
     Indication: OEDEMA
     Dosage: 60 MG (40 + 20) 1 QD ORALLY
     Route: 048

REACTIONS (3)
  - OEDEMA PERIPHERAL [None]
  - RASH GENERALISED [None]
  - RASH PRURITIC [None]
